FAERS Safety Report 17282024 (Version 2)
Quarter: 2021Q1

REPORT INFORMATION
  Report Type: Spontaneous
  Country: US (occurrence: US)
  Receive Date: 20200117
  Receipt Date: 20210105
  Transmission Date: 20210419
  Serious: Yes (Hospitalization, Other)
  Sender: FDA-Public Use
  Company Number: US-TORRENT-00009612

PATIENT
  Age: 55 Year
  Sex: Female

DRUGS (1)
  1. TRAZODONE [Suspect]
     Active Substance: TRAZODONE HYDROCHLORIDE
     Indication: PRODUCT USED FOR UNKNOWN INDICATION
     Dosage: APPROX INGESTED DOSE OF 2000?4500 MG

REACTIONS (17)
  - Arrhythmia [Recovered/Resolved]
  - Suicide attempt [Unknown]
  - Cardiogenic shock [Recovered/Resolved]
  - Intentional overdose [Unknown]
  - Unresponsive to stimuli [Unknown]
  - Balance disorder [Unknown]
  - Generalised tonic-clonic seizure [Recovered/Resolved]
  - Respiratory arrest [Recovered/Resolved]
  - Consciousness fluctuating [Unknown]
  - Atrioventricular block [Recovered/Resolved]
  - Gait disturbance [Unknown]
  - Tremor [Unknown]
  - Bundle branch block bilateral [Recovered/Resolved]
  - Blepharospasm [Unknown]
  - Hypertension [Unknown]
  - Tachycardia [Unknown]
  - Electrocardiogram QT prolonged [Recovered/Resolved]
